FAERS Safety Report 15540547 (Version 2)
Quarter: 2018Q4

REPORT INFORMATION
  Report Type: Report from Study
  Country: US (occurrence: US)
  Receive Date: 20181023
  Receipt Date: 20181026
  Transmission Date: 20190205
  Serious: Yes (Disabling, Other)
  Sender: FDA-Public Use
  Company Number: US-BRISTOL-MYERS SQUIBB COMPANY-BMS-2018-077945

PATIENT
  Sex: Female

DRUGS (2)
  1. NIVOLUMAB [Suspect]
     Active Substance: NIVOLUMAB
     Indication: MALIGNANT MELANOMA
     Dosage: UNK, Q2WK
     Route: 042
  2. IPILIMUMAB [Suspect]
     Active Substance: IPILIMUMAB
     Indication: MALIGNANT MELANOMA
     Dosage: UNK, Q2WK
     Route: 042

REACTIONS (17)
  - Fatigue [Unknown]
  - Diarrhoea [Unknown]
  - Mood swings [Unknown]
  - Somnolence [Unknown]
  - Blood folate decreased [Unknown]
  - Eating disorder [Unknown]
  - Abdominal pain upper [Unknown]
  - Eye irritation [Not Recovered/Not Resolved]
  - Vitamin D decreased [Unknown]
  - Contusion [Unknown]
  - Arthralgia [Not Recovered/Not Resolved]
  - Visual impairment [Not Recovered/Not Resolved]
  - Weight increased [Unknown]
  - Pain in extremity [Unknown]
  - Erythema [Unknown]
  - Hypersensitivity [Unknown]
  - Vitamin B complex deficiency [Unknown]
